FAERS Safety Report 4887326-2 (Version None)
Quarter: 2005Q4

REPORT INFORMATION
  Report Type: 
  Country: None (occurrence: None)
  Receive Date: 20051221
  Receipt Date: 20050824
  Transmission Date: 20060501
  Serious: No
  Sender: FDA-Public Use
  Company Number: US-YAMANOUCHI-YPA20050449

PATIENT
  Age: 71 Year
  Sex: Female
  Weight: 85.7298 kg

DRUGS (7)
  1. VESICARE [Suspect]
     Indication: INCONTINENCE
     Dosage: 5 MG QD PO
     Route: 048
     Dates: start: 20050801
  2. AMBIEN [Concomitant]
  3. PAXIL [Concomitant]
  4. ACCOLATE [Concomitant]
  5. ATACAND [Concomitant]
  6. VYTORIN [Concomitant]
  7. COREG [Concomitant]

REACTIONS (2)
  - ERUCTATION [None]
  - GASTROOESOPHAGEAL REFLUX DISEASE [None]
